FAERS Safety Report 9226189 (Version 2)
Quarter: 2013Q3

REPORT INFORMATION
  Report Type: Report from Study
  Country: US (occurrence: US)
  Receive Date: 20130411
  Receipt Date: 20130829
  Transmission Date: 20140515
  Serious: Yes (Other)
  Sender: FDA-Public Use
  Company Number: US-ELI_LILLY_AND_COMPANY-US201201002285

PATIENT
  Age: 71 Year
  Sex: Female

DRUGS (5)
  1. TERIPARATIDE [Suspect]
     Indication: OSTEOPOROSIS
     Dosage: 20 UG, QD
     Route: 065
     Dates: start: 201110
  2. TERIPARATIDE [Suspect]
     Dosage: 20 UG, QD
     Route: 065
  3. TERIPARATIDE [Suspect]
     Dosage: 20 UG, QD
     Route: 065
     Dates: start: 201110
  4. TERIPARATIDE [Suspect]
     Dosage: 20 UG, QD
     Route: 065
     Dates: start: 201110
  5. TERIPARATIDE [Suspect]
     Dosage: UNK, QD
     Dates: start: 20121109

REACTIONS (8)
  - Thyroid mass [Unknown]
  - Tendon injury [Unknown]
  - Heart rate decreased [Unknown]
  - Weight increased [Unknown]
  - Muscle injury [Recovered/Resolved]
  - Injection site discomfort [Unknown]
  - Injection site pain [Not Recovered/Not Resolved]
  - Injection site mass [Recovered/Resolved]
